FAERS Safety Report 6889803-1 (Version None)
Quarter: 2010Q3

REPORT INFORMATION
  Report Type: 
  Country: None (occurrence: None)
  Receive Date: 20100730
  Receipt Date: 20080506
  Transmission Date: 20110219
  Serious: No
  Sender: FDA-Public Use
  Company Number: US-PFIZER INC-2007028205

PATIENT
  Sex: Male
  Weight: 68.95 kg

DRUGS (12)
  1. LIPITOR [Suspect]
     Indication: TYPE IIA HYPERLIPIDAEMIA
     Dates: start: 19990101, end: 20070301
  2. LIPITOR [Suspect]
     Indication: BLOOD TRIGLYCERIDES INCREASED
  3. TRICOR [Suspect]
     Indication: BLOOD TRIGLYCERIDES INCREASED
     Route: 048
     Dates: start: 20030101, end: 20070301
  4. ACETYLSALICYLIC ACID SRT [Concomitant]
  5. IBUPROFEN TABLETS [Concomitant]
     Indication: PAIN
     Route: 048
  6. FLURAZEPAM HYDROCHLORIDE [Concomitant]
     Indication: PAIN
     Route: 048
  7. DIAZEPAM [Concomitant]
     Indication: PAIN
     Route: 048
  8. OXYCODONE HCL [Concomitant]
     Indication: PAIN
     Route: 048
  9. OXYCET [Concomitant]
     Indication: PAIN
     Route: 048
  10. MORPHINE [Concomitant]
     Indication: PAIN
     Route: 048
  11. CLONAZEPAM [Concomitant]
     Indication: PAIN
     Route: 048
  12. GLUCOPHAGE [Concomitant]
     Indication: DIABETES MELLITUS
     Route: 048

REACTIONS (7)
  - MUSCULAR WEAKNESS [None]
  - MUSCULOSKELETAL PAIN [None]
  - MYALGIA [None]
  - NECK PAIN [None]
  - PAIN [None]
  - PAIN IN EXTREMITY [None]
  - TEMPOROMANDIBULAR JOINT SYNDROME [None]
